FAERS Safety Report 5916026-2 (Version None)
Quarter: 2008Q4

REPORT INFORMATION
  Report Type: 
  Country: None (occurrence: None)
  Receive Date: 20081009
  Receipt Date: 20081009
  Transmission Date: 20090506
  Serious: Yes (Hospitalization)
  Sender: FDA-Public Use
  Company Number: None

PATIENT
  Age: 73 Year
  Sex: Female
  Weight: 54.7 kg

DRUGS (11)
  1. REQUIP [Suspect]
     Dosage: 2 MG / PO / TID
     Route: 048
  2. SINEMET [Concomitant]
  3. AMANTADINE HCL [Concomitant]
  4. ATENOLOL [Concomitant]
  5. ASPIRIN [Concomitant]
  6. SENOKOT [Concomitant]
  7. IRON [Concomitant]
  8. MEVACOR [Concomitant]
  9. PLAVIX [Concomitant]
  10. ZESTRIL [Concomitant]
  11. ISOSORBIDE [Concomitant]

REACTIONS (2)
  - HALLUCINATION [None]
  - UNEVALUABLE EVENT [None]
